FAERS Safety Report 24664539 (Version 1)
Quarter: 2024Q4

REPORT INFORMATION
  Report Type: Spontaneous
  Country: GB (occurrence: GB)
  Receive Date: 20241126
  Receipt Date: 20241126
  Transmission Date: 20250114
  Serious: Yes (Disabling, Other)
  Sender: DAIICHI
  Company Number: None

PATIENT
  Age: 87 Year
  Sex: Female
  Weight: 74 kg

DRUGS (12)
  1. EDOXABAN [Suspect]
     Active Substance: EDOXABAN
     Indication: Product used for unknown indication
     Dosage: 30 MG, QD
     Route: 048
     Dates: end: 20240709
  2. ATORVASTATIN [Concomitant]
     Active Substance: ATORVASTATIN
     Indication: Product used for unknown indication
     Dosage: 20 MG
     Route: 065
  3. EMPAGLIFLOZIN [Concomitant]
     Active Substance: EMPAGLIFLOZIN
     Indication: Product used for unknown indication
     Dosage: 10 MG, QD
     Route: 048
  4. LERCANIDIPINE [Concomitant]
     Active Substance: LERCANIDIPINE
     Indication: Product used for unknown indication
     Dosage: 20 MG
     Route: 065
  5. RAMIPRIL [Concomitant]
     Active Substance: RAMIPRIL
     Indication: Product used for unknown indication
     Dosage: 2.5 MG
     Route: 065
  6. FUROSEMIDE [Concomitant]
     Active Substance: FUROSEMIDE
     Indication: Product used for unknown indication
     Dosage: 20 MG, QD
     Route: 065
  7. CREDALAST CLASSIC CIRCULAR NYLON STOCKING [Concomitant]
     Indication: Product used for unknown indication
     Dosage: AS NEEDED
     Route: 065
     Dates: start: 20240905, end: 20241018
  8. ADJUVANTED TRIVALENT INFLUENZA VACCINE [Concomitant]
     Indication: Product used for unknown indication
     Dosage: 0.5 ML (DOSE 1)
     Route: 065
     Dates: start: 20241003, end: 20241003
  9. MINERAL OIL\PARAFFIN [Concomitant]
     Active Substance: MINERAL OIL\PARAFFIN
     Indication: Product used for unknown indication
     Dosage: 500 G, AS NEEDED
     Route: 065
     Dates: start: 20241010
  10. BETAMETHASONE [Concomitant]
     Active Substance: BETAMETHASONE
     Indication: Product used for unknown indication
     Dosage: 100 G (USE SPARINGLY WITH DRESSING CHANGES)
     Route: 061
     Dates: start: 20241017
  11. WARFARIN [Concomitant]
     Active Substance: WARFARIN
     Indication: Vasculitis
     Dosage: TAKE AS INSTRUCTED BY ANTICOAGULANT CLINIC
     Route: 065
     Dates: start: 20241022
  12. SPIKEVAX [Concomitant]
     Active Substance: CX-046684
     Indication: Product used for unknown indication
     Dosage: 0.5 ML
     Route: 030
     Dates: start: 20241022, end: 20241022

REACTIONS (6)
  - Proteinuria [Recovered/Resolved with Sequelae]
  - Renal impairment [Recovered/Resolved with Sequelae]
  - Vasculitis [Recovered/Resolved with Sequelae]
  - Purpura [Recovered/Resolved with Sequelae]
  - Haematuria [Recovered/Resolved with Sequelae]
  - Haematoma [Recovered/Resolved with Sequelae]
